FAERS Safety Report 6154368-9 (Version None)
Quarter: 2009Q2

REPORT INFORMATION
  Report Type: 
  Country: None (occurrence: None)
  Receive Date: 20090410
  Receipt Date: 20090406
  Transmission Date: 20091009
  Serious: Yes (Other)
  Sender: FDA-Public Use
  Company Number: 2009SP006401

PATIENT
  Age: 54 Year
  Sex: Male
  Weight: 82 kg

DRUGS (2)
  1. INTRON A [Suspect]
     Indication: HEPATITIS C
     Dosage: 6 MIU; IM
     Route: 030
     Dates: start: 20030218, end: 20031028
  2. REBETOL [Suspect]
     Indication: HEPATITIS C
     Dosage: 200 MG; PO
     Route: 048
     Dates: start: 20030218, end: 20031028

REACTIONS (1)
  - BASEDOW'S DISEASE [None]
